FAERS Safety Report 6696361-3 (Version None)
Quarter: 2010Q2

REPORT INFORMATION
  Report Type: 
  Country: None (occurrence: None)
  Receive Date: 20100421
  Receipt Date: 20100416
  Transmission Date: 20101027
  Serious: Yes (Death, Hospitalization, Other)
  Sender: FDA-Public Use
  Company Number: 2010SP021547

PATIENT
  Age: 45 Year
  Sex: Female

DRUGS (3)
  1. CELESTONE [Suspect]
     Indication: HEADACHE
     Dates: start: 20100311
  2. VOLTAREN [Suspect]
     Indication: HEADACHE
     Dates: start: 20100311
  3. PARECOXIB SODIUM [Suspect]
     Indication: HEADACHE
     Dosage: 40 MG;ONCE;IM
     Route: 030
     Dates: start: 20100311

REACTIONS (12)
  - ANAPHYLACTIC REACTION [None]
  - CONVULSION [None]
  - DIALYSIS [None]
  - GASTROINTESTINAL HAEMORRHAGE [None]
  - HAEMOGLOBIN DECREASED [None]
  - HEPATIC ENZYME INCREASED [None]
  - HYPOXIC ENCEPHALOPATHY [None]
  - LOSS OF CONSCIOUSNESS [None]
  - MULTI-ORGAN FAILURE [None]
  - NO THERAPEUTIC RESPONSE [None]
  - PNEUMONIA [None]
  - RENAL FAILURE [None]
